FAERS Safety Report 14790725 (Version 1)
Quarter: 2018Q2

REPORT INFORMATION
  Report Type: Spontaneous
  Country: US (occurrence: US)
  Receive Date: 20180423
  Receipt Date: 20180423
  Transmission Date: 20180711
  Serious: No
  Sender: FDA-Public Use
  Company Number: US-LEXICON PHARMACEUTICALS, INC-18-1606-00335

PATIENT
  Sex: Female

DRUGS (5)
  1. TELOTRISTAT ETHYL [Suspect]
     Active Substance: TELOTRISTAT ETHYL
     Indication: CARCINOID TUMOUR OF THE SMALL BOWEL
     Route: 048
     Dates: start: 20170320
  2. AFINITOR [Concomitant]
     Active Substance: EVEROLIMUS
     Route: 048
  3. AFINITOR [Concomitant]
     Active Substance: EVEROLIMUS
     Route: 048
  4. AFINITOR [Concomitant]
     Active Substance: EVEROLIMUS
     Route: 048
  5. TELOTRISTAT ETHYL [Suspect]
     Active Substance: TELOTRISTAT ETHYL
     Route: 048
     Dates: start: 201704

REACTIONS (2)
  - Dermal cyst [Recovering/Resolving]
  - Stomatitis [Recovering/Resolving]
